FAERS Safety Report 7043937-X (Version None)
Quarter: 2010Q4

REPORT INFORMATION
  Report Type: 
  Country: None (occurrence: None)
  Receive Date: 20101008
  Receipt Date: 20101008
  Transmission Date: 20110411
  Serious: Yes (Disabling)
  Sender: FDA-Public Use
  Company Number: None

PATIENT
  Age: 47 Year
  Sex: Male
  Weight: 79.9238 kg

DRUGS (7)
  1. ZYPREXA [Suspect]
     Indication: PSYCHOTIC DISORDER
  2. CELEXA [Concomitant]
  3. LAMISIL [Concomitant]
  4. CREA -TERBINAFINE HCL- [Concomitant]
  5. IBU [Concomitant]
  6. AMBIEN [Concomitant]
  7. SIMVASTATIN [Concomitant]

REACTIONS (1)
  - NYSTAGMUS [None]
